FAERS Safety Report 8148772-7 (Version None)
Quarter: 2012Q1

REPORT INFORMATION
  Report Type: 
  Country: None (occurrence: None)
  Receive Date: 20120218
  Receipt Date: 20110708
  Transmission Date: 20120608
  Serious: No
  Sender: FDA-Public Use
  Company Number: US-ALLERGAN-1109258US

PATIENT
  Age: 72 Year
  Sex: Female

DRUGS (2)
  1. BOTOX COSMETIC [Suspect]
     Indication: SKIN WRINKLING
     Dosage: UNK UNITS, SINGLE
     Route: 030
     Dates: start: 20110523, end: 20110523
  2. BOTOX COSMETIC [Suspect]
     Dosage: UNK UNITS, SINGLE
     Route: 030
     Dates: start: 20110606, end: 20110606

REACTIONS (4)
  - EYELID PTOSIS [None]
  - VISION BLURRED [None]
  - EYE DISCHARGE [None]
  - ABNORMAL SENSATION IN EYE [None]
